FAERS Safety Report 4845878-2 (Version None)
Quarter: 2005Q4

REPORT INFORMATION
  Report Type: 
  Country: None (occurrence: None)
  Receive Date: 20051201
  Receipt Date: 20051115
  Transmission Date: 20060501
  Serious: Yes (Other)
  Sender: FDA-Public Use
  Company Number: 2005BL006855

PATIENT
  Age: 52 Year
  Sex: Male

DRUGS (8)
  1. CARTEOL 2% COLLYRE (CARTEOLOL HYDROCHLORIDE) [Suspect]
     Indication: INTRAOCULAR PRESSURE INCREASED
     Dosage: 2 DROP; DAILY; OPHTHALMIC
     Route: 047
     Dates: start: 20010414
  2. LATANOPROST [Suspect]
     Indication: INTRAOCULAR PRESSURE INCREASED
     Dosage: 1 DROP; DAILY; OPHTHALMIC
     Route: 047
     Dates: start: 20010414
  3. OFLOXACIN [Concomitant]
  4. DORZOLAMIDE [Concomitant]
  5. HYDROCHLORIDE [Concomitant]
  6. METHYLPREDNISOLONE [Concomitant]
  7. ACETAZOLAMIDE [Concomitant]
  8. BETAMETHASONE SODIUM PHOSPHATE [Concomitant]

REACTIONS (6)
  - ASTIGMATISM [None]
  - CORNEAL GRAFT REJECTION [None]
  - EYE INFLAMMATION [None]
  - KERATITIS HERPETIC [None]
  - UVEITIS [None]
  - VISUAL ACUITY REDUCED [None]
